FAERS Safety Report 25361957 (Version 1)
Quarter: 2025Q2

REPORT INFORMATION
  Report Type: Spontaneous
  Country: CN (occurrence: None)
  Receive Date: 20250527
  Receipt Date: 20250527
  Transmission Date: 20250717
  Serious: Yes (Life-Threatening, Hospitalization)
  Sender: UMEDICA LABS
  Company Number: CN-Umedica-000665

PATIENT
  Age: 12 Year
  Sex: Male

DRUGS (1)
  1. CARBAMAZEPINE [Suspect]
     Active Substance: CARBAMAZEPINE
     Indication: Depression
     Dosage: RECEIVED IN DIVIDED DOSES PER DAY
     Route: 048

REACTIONS (11)
  - Osteonecrosis [Unknown]
  - Drug monitoring procedure not performed [Unknown]
  - Off label use [Unknown]
  - Nerve injury [Unknown]
  - Sinus arrhythmia [Unknown]
  - Blood 1,25-dihydroxycholecalciferol decreased [Unknown]
  - Rhabdomyolysis [Recovering/Resolving]
  - Liver injury [Recovering/Resolving]
  - Renal injury [Recovering/Resolving]
  - Drug level increased [Recovering/Resolving]
  - Pain in extremity [Not Recovered/Not Resolved]

NARRATIVE: CASE EVENT DATE: 20240512
